FAERS Safety Report 8242551-8 (Version None)
Quarter: 2012Q1

REPORT INFORMATION
  Report Type: 
  Country: None (occurrence: None)
  Receive Date: 20120329
  Receipt Date: 20120323
  Transmission Date: 20120608
  Serious: Yes (Hospitalization)
  Sender: FDA-Public Use
  Company Number: PHEH2012US005580

PATIENT
  Sex: Female

DRUGS (6)
  1. NAPROXEN [Concomitant]
  2. LORTAB [Concomitant]
     Dosage: UNK UKN, UNK
  3. GILENYA [Suspect]
     Indication: RELAPSING-REMITTING MULTIPLE SCLEROSIS
     Dosage: 0.5 MG, QD
     Route: 048
     Dates: start: 20110927, end: 20120320
  4. IMITREX [Concomitant]
  5. LEXAPRO [Concomitant]
     Dosage: 10 MG,
  6. TOPAMAX [Concomitant]

REACTIONS (12)
  - MEMORY IMPAIRMENT [None]
  - MULTIPLE SCLEROSIS RELAPSE [None]
  - FATIGUE [None]
  - DYSPHAGIA [None]
  - ANXIETY [None]
  - BACK PAIN [None]
  - CENTRAL NERVOUS SYSTEM LESION [None]
  - BRAIN OEDEMA [None]
  - ABDOMINAL TENDERNESS [None]
  - ABDOMINAL PAIN [None]
  - DRUG INEFFECTIVE [None]
  - MUSCULOSKELETAL PAIN [None]
